FAERS Safety Report 8201278-9 (Version None)
Quarter: 2012Q1

REPORT INFORMATION
  Report Type: 
  Country: None (occurrence: None)
  Receive Date: 20120312
  Receipt Date: 20120308
  Transmission Date: 20120608
  Serious: Yes (Death, Hospitalization)
  Sender: FDA-Public Use
  Company Number: PHHY2011ZA88754

PATIENT
  Sex: Female

DRUGS (2)
  1. ZOLEDRONOC ACID [Suspect]
     Dosage: 5 MG/100 ML
     Route: 042
     Dates: start: 20110901
  2. ZOLEDRONOC ACID [Suspect]
     Dosage: 5 MG/100 ML
     Route: 042

REACTIONS (9)
  - WEIGHT DECREASED [None]
  - MALAISE [None]
  - DEHYDRATION [None]
  - RESPIRATORY FAILURE [None]
  - INFUSION SITE HAEMATOMA [None]
  - PULMONARY FUNCTION TEST DECREASED [None]
  - UNDERDOSE [None]
  - CHRONIC OBSTRUCTIVE PULMONARY DISEASE [None]
  - ASTHENIA [None]
